FAERS Safety Report 6626425-1 (Version None)
Quarter: 2010Q1

REPORT INFORMATION
  Report Type: 
  Country: None (occurrence: None)
  Receive Date: 20100310
  Receipt Date: 20100303
  Transmission Date: 20100710
  Serious: Yes (Hospitalization)
  Sender: FDA-Public Use
  Company Number: DE-ABBOTT-10P-062-0629926-00

PATIENT
  Age: 68 Year
  Sex: Male
  Weight: 88 kg

DRUGS (15)
  1. ZEMPLAR [Suspect]
     Indication: HYPERPARATHYROIDISM SECONDARY
     Route: 042
     Dates: start: 20090123
  2. ASPIRIN [Concomitant]
     Indication: DRUG USE FOR UNKNOWN INDICATION
     Dosage: 0.5 TABLET, DAILY
     Dates: start: 20080303
  3. ATACAND [Concomitant]
     Indication: DRUG USE FOR UNKNOWN INDICATION
     Dates: start: 20070216
  4. CLONIDIN RETARD [Concomitant]
     Indication: DRUG USE FOR UNKNOWN INDICATION
  5. AMLODIPINE [Concomitant]
     Indication: DRUG USE FOR UNKNOWN INDICATION
     Route: 048
     Dates: start: 20090105
  6. TORSEMIDE [Concomitant]
     Indication: DRUG USE FOR UNKNOWN INDICATION
     Dates: start: 20070305
  7. INEGY [Concomitant]
     Indication: DRUG USE FOR UNKNOWN INDICATION
     Dosage: 10/20, DAILY
     Dates: start: 20050413
  8. SIMVASTATIN [Concomitant]
     Indication: DRUG USE FOR UNKNOWN INDICATION
     Dates: start: 20070704
  9. CA ACETATE NEFRO [Concomitant]
     Indication: DRUG USE FOR UNKNOWN INDICATION
     Dates: start: 20070706
  10. ZINKIT [Concomitant]
     Indication: DRUG USE FOR UNKNOWN INDICATION
     Dates: start: 20070516
  11. FOSRENOL [Concomitant]
     Indication: DRUG USE FOR UNKNOWN INDICATION
     Dates: start: 20090318
  12. MIMPARA [Concomitant]
     Indication: DRUG USE FOR UNKNOWN INDICATION
     Dates: start: 20090504
  13. NEO REC 4000 [Concomitant]
     Indication: DRUG USE FOR UNKNOWN INDICATION
     Dosage: 2 INJECTIONS PER WEEK
     Dates: start: 20070716
  14. FERRLECIT [Concomitant]
     Indication: DRUG USE FOR UNKNOWN INDICATION
     Dosage: 40
     Dates: start: 20070309
  15. DEKRISTOL [Concomitant]
     Indication: DRUG USE FOR UNKNOWN INDICATION
     Dates: start: 20070305

REACTIONS (1)
  - HOSPITALISATION [None]
